FAERS Safety Report 21886733 (Version 1)
Quarter: 2023Q1

REPORT INFORMATION
  Report Type: Spontaneous
  Country: US (occurrence: None)
  Receive Date: 20230119
  Receipt Date: 20230119
  Transmission Date: 20230418
  Serious: Yes (unspecified)
  Sender: FDA-Public Use
  Company Number: None

PATIENT
  Age: 64 Year
  Sex: Female
  Weight: 94.5 kg

DRUGS (5)
  1. FLUOROURACIL CREAM [Suspect]
     Active Substance: FLUOROURACIL
     Indication: Product used for unknown indication
     Route: 061
     Dates: start: 20230118, end: 20230118
  2. ALBUTEROL [Concomitant]
     Active Substance: ALBUTEROL
  3. LEVOTHYROXINE [Concomitant]
     Active Substance: LEVOTHYROXINE
  4. IBUPROFEN [Concomitant]
     Active Substance: IBUPROFEN
  5. Women^s Vitamins [Concomitant]

REACTIONS (3)
  - Muscle atrophy [None]
  - Exostosis [None]
  - Musculoskeletal disorder [None]

NARRATIVE: CASE EVENT DATE: 20230118
